FAERS Safety Report 7911207-0 (Version None)
Quarter: 2011Q4

REPORT INFORMATION
  Report Type: 
  Country: None (occurrence: None)
  Receive Date: 20111114
  Receipt Date: 20111103
  Transmission Date: 20120403
  Serious: No
  Sender: FDA-Public Use
  Company Number: US-JNJFOC-20111102049

PATIENT
  Sex: Male

DRUGS (7)
  1. ADVAIR DISKUS 100/50 [Concomitant]
     Route: 055
  2. ACETAMINOPHEN AND HYDROCODONE BITARTRATE [Concomitant]
     Route: 048
  3. CLONAZEPAM [Concomitant]
     Route: 048
  4. INVEGA SUSTENNA [Suspect]
     Indication: PRODUCT USED FOR UNKNOWN INDICATION
     Route: 030
     Dates: start: 20110805
  5. CYCLOBENZAPRINE [Concomitant]
     Route: 048
  6. LACTULOSE [Concomitant]
     Route: 048
  7. DICYCLOMINE [Concomitant]
     Route: 048

REACTIONS (3)
  - DRUG DOSE OMISSION [None]
  - SYRINGE ISSUE [None]
  - SELF-MEDICATION [None]
